FAERS Safety Report 19021067 (Version 1)
Quarter: 2021Q1

REPORT INFORMATION
  Report Type: Spontaneous
  Country: FR (occurrence: FR)
  Receive Date: 20210317
  Receipt Date: 20210317
  Transmission Date: 20210420
  Serious: Yes (Hospitalization)
  Sender: FDA-Public Use
  Company Number: FR-TEVA-2021-FR-1889354

PATIENT
  Age: 82 Year
  Sex: Female

DRUGS (3)
  1. ESCITALOPRAM [Suspect]
     Active Substance: ESCITALOPRAM OXALATE
     Indication: DEPRESSION
     Dosage: 5 MG
     Route: 048
     Dates: end: 20210129
  2. SERTRALINE [Interacting]
     Active Substance: SERTRALINE HYDROCHLORIDE
     Indication: DEPRESSION
     Dosage: 50 MG
     Route: 048
     Dates: start: 20210130, end: 20210205
  3. CORDARONE [Interacting]
     Active Substance: AMIODARONE HYDROCHLORIDE
     Indication: ARRHYTHMIA
     Dosage: 200 MG
     Route: 048
     Dates: start: 202012

REACTIONS (2)
  - Drug interaction [Recovering/Resolving]
  - Atrioventricular block [Recovering/Resolving]

NARRATIVE: CASE EVENT DATE: 20210130
